FAERS Safety Report 9601677 (Version 1)
Quarter: 2013Q4

REPORT INFORMATION
  Report Type: Report from Study
  Country: TR (occurrence: TR)
  Receive Date: 20131007
  Receipt Date: 20131007
  Transmission Date: 20140711
  Serious: Yes (Other)
  Sender: FDA-Public Use
  Company Number: TR-ROCHE-1285153

PATIENT
  Age: 79 Year
  Sex: Male

DRUGS (1)
  1. ALTEPLASE [Suspect]
     Indication: AGE-RELATED MACULAR DEGENERATION
     Dosage: CONCENTRATION OF 25MCG/ML AND A TOTAL VOLUME OF 0.1 TO 0.2 ML WAS INJECTED VIA A SILICONE OIL INJECT
     Route: 050

REACTIONS (1)
  - Retinal detachment [Unknown]
